FAERS Safety Report 11692598 (Version 1)
Quarter: 2015Q4

REPORT INFORMATION
  Report Type: Spontaneous
  Country: ZA (occurrence: ZA)
  Receive Date: 20151103
  Receipt Date: 20151103
  Transmission Date: 20160304
  Serious: Yes (Other)
  Sender: FDA-Public Use
  Company Number: ZA-BAYER-2015-447286

PATIENT
  Age: 37 Year
  Sex: Female

DRUGS (1)
  1. MIRENA [Suspect]
     Active Substance: LEVONORGESTREL
     Indication: CONTRACEPTION
     Dosage: 20 MCG/24HR, CONT
     Route: 015
     Dates: start: 20150925, end: 20151019

REACTIONS (15)
  - Anxiety [None]
  - Blood glucose fluctuation [None]
  - Decreased interest [None]
  - Libido decreased [None]
  - Headache [None]
  - Breast pain [None]
  - Urinary tract infection [None]
  - Myalgia [None]
  - Abdominal distension [None]
  - Fatigue [None]
  - Vaginal discharge [None]
  - Mood swings [None]
  - Breast enlargement [None]
  - Asthenia [None]
  - Device expulsion [None]

NARRATIVE: CASE EVENT DATE: 2015
